FAERS Safety Report 6411956-X (Version None)
Quarter: 2009Q4

REPORT INFORMATION
  Report Type: 
  Country: None (occurrence: None)
  Receive Date: 20091023
  Receipt Date: 20091014
  Transmission Date: 20100525
  Serious: Yes (Hospitalization)
  Sender: FDA-Public Use
  Company Number: US-JNJFOC-20090708173

PATIENT
  Sex: Male
  Weight: 69.4 kg

DRUGS (10)
  1. REMICADE [Suspect]
     Route: 042
  2. REMICADE [Suspect]
     Indication: CROHN'S DISEASE
     Route: 042
  3. IMMODIIUM [Suspect]
  4. IMMODIIUM [Suspect]
     Indication: CROHN'S DISEASE
  5. NEXIUM [Suspect]
     Indication: CROHN'S DISEASE
  6. PEDIALYTE [Suspect]
     Indication: CROHN'S DISEASE
  7. QUESTRAN [Suspect]
     Indication: CROHN'S DISEASE
  8. XIFAXAN [Suspect]
     Indication: CROHN'S DISEASE
  9. CERTOLIZUMAB [Suspect]
     Indication: DRUG USE FOR UNKNOWN INDICATION
  10. CIMZIA [Suspect]
     Indication: CROHN'S DISEASE

REACTIONS (2)
  - DEHYDRATION [None]
  - RENAL FAILURE ACUTE [None]
